FAERS Safety Report 8985778 (Version 1)
Quarter: 2012Q4

REPORT INFORMATION
  Report Type: 
  Country: US (occurrence: US)
  Receive Date: 20121226
  Receipt Date: 20121226
  Transmission Date: 20130627
  Serious: Yes (Hospitalization)
  Sender: FDA-Public Use
  Company Number: US-ELI_LILLY_AND_COMPANY-US201212006076

PATIENT
  Age: 66 None
  Sex: Female

DRUGS (4)
  1. FORTEO [Suspect]
     Indication: OSTEOPOROSIS
     Dosage: 20 ug, qd
     Dates: start: 20110812
  2. FORTEO [Suspect]
     Dosage: 20 ug, qd
  3. CYMBALTA [Concomitant]
     Indication: DEPRESSION
     Dosage: UNK
  4. LYRICA [Concomitant]

REACTIONS (6)
  - Ankle fracture [Unknown]
  - Fall [Unknown]
  - Impaired healing [Unknown]
  - Gait disturbance [Unknown]
  - Fall [Unknown]
  - Contusion [Unknown]
